FAERS Safety Report 8220425-6 (Version None)
Quarter: 2012Q1

REPORT INFORMATION
  Report Type: 
  Country: None (occurrence: None)
  Receive Date: 20120316
  Receipt Date: 20120227
  Transmission Date: 20120608
  Serious: Yes (Hospitalization)
  Sender: FDA-Public Use
  Company Number: 001139670A

PATIENT
  Age: 21 Year
  Sex: Male

DRUGS (1)
  1. PROACTIV 90 DAY KIT [Suspect]
     Indication: ACNE
     Dosage: DAILY
     Dates: start: 20120223

REACTIONS (2)
  - THROAT TIGHTNESS [None]
  - FACE OEDEMA [None]
